FAERS Safety Report 4350337-X (Version None)
Quarter: 2004Q2

REPORT INFORMATION
  Report Type: 
  Country: None (occurrence: None)
  Receive Date: 20040427
  Receipt Date: 20030725
  Transmission Date: 20050107
  Serious: No
  Sender: FDA-Public Use
  Company Number: 000627

PATIENT
  Age: 25 Year
  Sex: Female
  Weight: 107.9 kg

DRUGS (4)
  1. ZEVALIN [Suspect]
     Indication: NON-HODGKIN'S LYMPHOMA
     Dosage: SEE IMAGE
     Dates: start: 20020911, end: 20020911
  2. ZEVALIN [Suspect]
     Dosage: SEE IMAGE
     Dates: start: 20020918, end: 20020918
  3. .. [Suspect]
  4. .. [Suspect]

REACTIONS (1)
  - SINUSITIS [None]
